FAERS Safety Report 5108361-5 (Version None)
Quarter: 2006Q3

REPORT INFORMATION
  Report Type: 
  Country: None (occurrence: None)
  Receive Date: 20060915
  Receipt Date: 20060906
  Transmission Date: 20061208
  Serious: Yes (Hospitalization, Other)
  Sender: FDA-Public Use
  Company Number: 2006077765

PATIENT
  Age: 22 Year
  Sex: Male

DRUGS (1)
  1. GEODON [Suspect]
     Indication: DRUG USE FOR UNKNOWN INDICATION
     Dosage: 80 MG, INTRAMUSCULAR
     Route: 030
     Dates: start: 20060612

REACTIONS (3)
  - ANAPHYLACTIC SHOCK [None]
  - DROOLING [None]
  - SWOLLEN TONGUE [None]
